FAERS Safety Report 24751333 (Version 4)
Quarter: 2025Q1

REPORT INFORMATION
  Report Type: Spontaneous
  Country: US (occurrence: US)
  Receive Date: 20241219
  Receipt Date: 20250210
  Transmission Date: 20250408
  Serious: No
  Sender: BRISTOL-MYERS SQUIBB COMPANY
  Company Number: US-BRISTOL-MYERS SQUIBB COMPANY-2024-196433

PATIENT
  Age: 76 Year
  Sex: Male

DRUGS (2)
  1. POMALYST [Suspect]
     Active Substance: POMALIDOMIDE
     Indication: Plasma cell myeloma
     Dosage: FREQUENCY- 1-21 DAYS
     Route: 048
     Dates: start: 20241202
  2. POMALYST [Suspect]
     Active Substance: POMALIDOMIDE
     Dosage: TAKE 1 WHOLE CAPSULE ORALLY WITH WATER, WITH OR WITHOUT FOOD, AT THE SAME TIME DAILY ON DAYS 1-14
     Route: 048

REACTIONS (3)
  - Implant site infection [Not Recovered/Not Resolved]
  - White blood cell count decreased [Recovering/Resolving]
  - Off label use [Unknown]
